FAERS Safety Report 14567040 (Version 1)
Quarter: 2018Q1

REPORT INFORMATION
  Report Type: Spontaneous
  Country: US (occurrence: US)
  Receive Date: 20180222
  Receipt Date: 20180222
  Transmission Date: 20180509
  Serious: Yes (Other)
  Sender: FDA-Public Use
  Company Number: None

PATIENT
  Age: 39 Year
  Sex: Female
  Weight: 60.75 kg

DRUGS (7)
  1. VITAMIN D GUMMIES [Concomitant]
  2. ZICAM COLD REMEDY [Suspect]
     Active Substance: HOMEOPATHICS\ZINC ACETATE\ZINC GLUCONATE
     Indication: NASOPHARYNGITIS
     Dosage: QUANTITY:1 TUBE;OTHER FREQUENCY:EVERY 3 HOURS;OTHER ROUTE:RUBBED INSIDE NOSTRILS?
     Route: 045
     Dates: start: 20180219, end: 20180220
  3. FUROSEMIDE. [Concomitant]
     Active Substance: FUROSEMIDE
  4. ZICAM COLD REMEDY [Suspect]
     Active Substance: HOMEOPATHICS\ZINC ACETATE\ZINC GLUCONATE
     Indication: PROPHYLAXIS
     Dosage: QUANTITY:1 TUBE;OTHER FREQUENCY:EVERY 3 HOURS;OTHER ROUTE:RUBBED INSIDE NOSTRILS?
     Route: 045
     Dates: start: 20180219, end: 20180220
  5. GABAPENTIN. [Concomitant]
     Active Substance: GABAPENTIN
  6. PANTAPROZOLE [Concomitant]
     Active Substance: PANTOPRAZOLE SODIUM
  7. SPIRONOLACTONE. [Concomitant]
     Active Substance: SPIRONOLACTONE

REACTIONS (2)
  - Anosmia [None]
  - Ageusia [None]

NARRATIVE: CASE EVENT DATE: 20180220
